FAERS Safety Report 8916150 (Version 1)
Quarter: 2012Q4

REPORT INFORMATION
  Report Type: 
  Country: NL (occurrence: NL)
  Receive Date: 20121120
  Receipt Date: 20121120
  Transmission Date: 20130627
  Serious: Yes (Life-Threatening, Hospitalization)
  Sender: FDA-Public Use
  Company Number: NL-WATSON-2012-19701

PATIENT
  Age: 70 Year
  Sex: Female

DRUGS (3)
  1. MINOCYCLINE HCL (WATSON LABORATORIES) [Suspect]
     Indication: INFECTION
     Dosage: 200 mg, daily
     Route: 048
     Dates: start: 20120904, end: 20121012
  2. AUGMENTIN [Suspect]
     Indication: INFECTION
     Dosage: 1 DF, unknown
     Route: 042
     Dates: start: 20120813, end: 20120921
  3. COTRIMOXAZOLE [Suspect]
     Indication: INFECTION
     Dosage: 1 DF, bid
     Route: 048
     Dates: start: 20120921, end: 20121012

REACTIONS (4)
  - Drug interaction [Recovering/Resolving]
  - Hepatotoxicity [Recovering/Resolving]
  - Hypoglycaemia [None]
  - General physical health deterioration [None]
